FAERS Safety Report 9382397 (Version 2)
Quarter: 2013Q4

REPORT INFORMATION
  Report Type: Spontaneous
  Country: US (occurrence: US)
  Receive Date: 20130703
  Receipt Date: 20131007
  Transmission Date: 20140711
  Serious: Yes (Other)
  Sender: FDA-Public Use
  Company Number: US-BAYER-2013-081297

PATIENT
  Age: 30 Year
  Sex: Female
  Weight: 114 kg

DRUGS (2)
  1. MIRENA [Suspect]
     Indication: MENORRHAGIA
     Dosage: 20 MCG/24HR, CONT
     Dates: start: 20130515, end: 20130531
  2. MIRENA [Suspect]
     Indication: CONTRACEPTION

REACTIONS (2)
  - Uterine perforation [Recovered/Resolved]
  - Abdominal pain [Recovered/Resolved]
